FAERS Safety Report 20383933 (Version 2)
Quarter: 2022Q1

REPORT INFORMATION
  Report Type: Spontaneous
  Country: JP (occurrence: JP)
  Receive Date: 20220127
  Receipt Date: 20220210
  Transmission Date: 20220424
  Serious: Yes (Other)
  Sender: FDA-Public Use
  Company Number: JP-TEVA-2022-JP-2001070

PATIENT
  Age: 25 Year
  Sex: Male

DRUGS (7)
  1. PREDNISOLONE [Suspect]
     Active Substance: PREDNISOLONE
     Indication: Tubulointerstitial nephritis
     Dosage: 40 MILLIGRAM DAILY;
     Route: 048
  2. PREDNISOLONE [Suspect]
     Active Substance: PREDNISOLONE
     Dosage: 10 MILLIGRAM DAILY;
     Route: 048
  3. PREDNISOLONE [Suspect]
     Active Substance: PREDNISOLONE
     Dosage: 60 MILLIGRAM DAILY;
     Route: 048
  4. CARBAMAZEPINE [Suspect]
     Active Substance: CARBAMAZEPINE
     Indication: Temporal lobe epilepsy
     Route: 065
  5. ZONISAMIDE [Concomitant]
     Active Substance: ZONISAMIDE
     Indication: Temporal lobe epilepsy
     Route: 065
  6. VALPROATE [Concomitant]
     Active Substance: VALPROIC ACID
     Indication: Temporal lobe epilepsy
     Route: 065
  7. LACOSAMIDE [Concomitant]
     Active Substance: LACOSAMIDE
     Indication: Temporal lobe epilepsy
     Route: 065

REACTIONS (2)
  - Tubulointerstitial nephritis [Recovering/Resolving]
  - Steroid dependence [Recovered/Resolved]
